FAERS Safety Report 6765823-2 (Version None)
Quarter: 2010Q2

REPORT INFORMATION
  Report Type: 
  Country: None (occurrence: None)
  Receive Date: 20100609
  Receipt Date: 20100527
  Transmission Date: 20101027
  Serious: Yes (Life-Threatening)
  Sender: FDA-Public Use
  Company Number: 601301

PATIENT
  Sex: 0

DRUGS (2)
  1. LIDOCAINE HCL [Suspect]
     Indication: ANAESTHESIA PROCEDURE
     Dosage: 40 MG
     Dates: start: 20100526
  2. SODIUM BICARBONATE [Suspect]
     Indication: ANAESTHESIA PROCEDURE
     Dates: start: 20100526

REACTIONS (5)
  - APPARENT DEATH [None]
  - CARDIAC DISORDER [None]
  - CIRCULATORY COLLAPSE [None]
  - DRUG TOXICITY [None]
  - VENTRICULAR TACHYCARDIA [None]
